FAERS Safety Report 6740001-1 (Version None)
Quarter: 2010Q2

REPORT INFORMATION
  Report Type: 
  Country: None (occurrence: None)
  Receive Date: 20100520
  Receipt Date: 20091028
  Transmission Date: 20101027
  Serious: Yes (Other)
  Sender: FDA-Public Use
  Company Number: 2009276429

PATIENT
  Sex: Female

DRUGS (1)
  1. NICOTROL [Suspect]

REACTIONS (2)
  - MEDICATION ERROR [None]
  - NICOTINE DEPENDENCE [None]
